FAERS Safety Report 19667528 (Version 4)
Quarter: 2021Q3

REPORT INFORMATION
  Report Type: Spontaneous
  Country: HR (occurrence: HR)
  Receive Date: 20210806
  Receipt Date: 20210920
  Transmission Date: 20211014
  Serious: Yes (Hospitalization, Other)
  Sender: FDA-Public Use
  Company Number: NVSC2021HR174516

PATIENT
  Age: 23 Year
  Sex: Female

DRUGS (4)
  1. CLINDAMYCIN. [Suspect]
     Active Substance: CLINDAMYCIN
     Indication: PERITONSILLAR ABSCESS
     Dosage: 600 MG EVERY EIGHT HOURS FOR TEN DAYS
     Route: 065
     Dates: start: 2021, end: 2021
  2. GARDASIL 9 [Suspect]
     Active Substance: HUMAN PAPILLOMAVIRUS TYPE 11 L1 CAPSID PROTEIN ANTIGEN\HUMAN PAPILLOMAVIRUS TYPE 16 L1 CAPSID PROTEIN ANTIGEN\HUMAN PAPILLOMAVIRUS TYPE 18 L1 CAPSID PROTEIN ANTIGEN\HUMAN PAPILLOMAVIRUS TYPE 31 L1 CAPSID PROTEIN ANTIGEN\HUMAN PAPILLOMAVIRUS TYPE 33 L1 CAPSID PROTEIN ANTIGEN\HUMAN PAPILLOMAVIRUS TYPE
     Indication: PROPHYLAXIS
     Dosage: UNK
     Route: 065
     Dates: start: 20210420
  3. GARDASIL 9 [Suspect]
     Active Substance: HUMAN PAPILLOMAVIRUS TYPE 11 L1 CAPSID PROTEIN ANTIGEN\HUMAN PAPILLOMAVIRUS TYPE 16 L1 CAPSID PROTEIN ANTIGEN\HUMAN PAPILLOMAVIRUS TYPE 18 L1 CAPSID PROTEIN ANTIGEN\HUMAN PAPILLOMAVIRUS TYPE 31 L1 CAPSID PROTEIN ANTIGEN\HUMAN PAPILLOMAVIRUS TYPE 33 L1 CAPSID PROTEIN ANTIGEN\HUMAN PAPILLOMAVIRUS TYPE
     Dosage: UNK
     Route: 065
     Dates: start: 202104
  4. CLINDAMYCIN. [Suspect]
     Active Substance: CLINDAMYCIN
     Dosage: 1800 MG, QD (EVERY EIGHT HOURS FOR TEN DAYS)
     Route: 065
     Dates: start: 2021, end: 2021

REACTIONS (12)
  - Herpes zoster [Recovered/Resolved]
  - Immune system disorder [Not Recovered/Not Resolved]
  - Blood urine present [Unknown]
  - Endometriosis [Not Recovered/Not Resolved]
  - Oropharyngeal pain [Unknown]
  - Ultrasound ovary abnormal [Not Recovered/Not Resolved]
  - Cystitis noninfective [Unknown]
  - Peritonsillitis [Not Recovered/Not Resolved]
  - Rash [Recovered/Resolved]
  - Peritonsillar abscess [Not Recovered/Not Resolved]
  - Vomiting [Unknown]
  - Fungal infection [Unknown]

NARRATIVE: CASE EVENT DATE: 2021
